FAERS Safety Report 4471179-0 (Version None)
Quarter: 2004Q4

REPORT INFORMATION
  Report Type: 
  Country: None (occurrence: None)
  Receive Date: 20041006
  Receipt Date: 20040924
  Transmission Date: 20050328
  Serious: Yes (Other)
  Sender: FDA-Public Use
  Company Number: 2004062393

PATIENT
  Age: 41 Year
  Sex: Female

DRUGS (3)
  1. PHENYTOIN SODIUM [Suspect]
     Indication: EPILEPSY
     Dosage: 300 MG (300 MG, 1 IN 1 D), ORAL
     Route: 048
  2. PAROXETINE HCL [Suspect]
     Indication: ANXIETY
     Dosage: 30 MG (30 MG, 1 IN 1 D), ORAL
     Route: 048
  3. RISPERDAL [Concomitant]

REACTIONS (2)
  - HEAD INJURY [None]
  - IDIOPATHIC THROMBOCYTOPENIC PURPURA [None]
